FAERS Safety Report 5926686-8 (Version None)
Quarter: 2008Q4

REPORT INFORMATION
  Report Type: 
  Country: None (occurrence: None)
  Receive Date: 20081017
  Receipt Date: 20081007
  Transmission Date: 20090506
  Serious: Yes (Other)
  Sender: FDA-Public Use
  Company Number: ADE2008-0337

PATIENT
  Age: 78 Year
  Sex: Male

DRUGS (4)
  1. CITALOPRAM [Suspect]
     Indication: EPILEPSY
     Dosage: 10 MG DAILY PO
     Route: 048
     Dates: start: 20080422
  2. DIAZEPAM [Concomitant]
  3. FELODIPINE [Concomitant]
  4. TEGRETOL [Concomitant]

REACTIONS (3)
  - ABNORMAL BEHAVIOUR [None]
  - COMPLEX PARTIAL SEIZURES [None]
  - GLOBAL AMNESIA [None]
